FAERS Safety Report 6932174-2 (Version None)
Quarter: 2010Q3

REPORT INFORMATION
  Report Type: 
  Country: None (occurrence: None)
  Receive Date: 20100819
  Receipt Date: 20100804
  Transmission Date: 20110219
  Serious: Yes (Hospitalization, Other)
  Sender: FDA-Public Use
  Company Number: B0669852A

PATIENT
  Sex: Female

DRUGS (5)
  1. AMOXICILLIN + CLAVULANATE POTASSIUM [Suspect]
  2. PIPERACILLIN AND TAZOBACTAM [Suspect]
  3. VANCOMYCIN [Suspect]
  4. ANALGESIC [Suspect]
  5. DEXAMETHASONE [Suspect]

REACTIONS (4)
  - CAESAREAN SECTION [None]
  - DRUG EXPOSURE DURING PREGNANCY [None]
  - FOETAL HEART RATE DECELERATION [None]
  - LIVE BIRTH [None]
